FAERS Safety Report 6906947-6 (Version None)
Quarter: 2010Q3

REPORT INFORMATION
  Report Type: 
  Country: None (occurrence: None)
  Receive Date: 20100802
  Receipt Date: 20100720
  Transmission Date: 20110219
  Serious: Yes (Hospitalization)
  Sender: FDA-Public Use
  Company Number: 7011711

PATIENT
  Age: 41 Year
  Sex: Male
  Weight: 99 kg

DRUGS (3)
  1. REBIF [Suspect]
     Indication: MULTIPLE SCLEROSIS
     Dosage: 44 MCG, 3 IN 1 WK, SUBCUTANEOUS
     Route: 058
     Dates: start: 20060207
  2. METHYLPREDNISOLONE [Suspect]
     Dosage: 1 IN 1 M
  3. FOSAMAX [Concomitant]

REACTIONS (5)
  - ANKLE FRACTURE [None]
  - HAIR DISORDER [None]
  - INTERVERTEBRAL DISC PROTRUSION [None]
  - OSTEOPENIA [None]
  - ROAD TRAFFIC ACCIDENT [None]
